FAERS Safety Report 4914210-8 (Version None)
Quarter: 2006Q1

REPORT INFORMATION
  Report Type: 
  Country: None (occurrence: None)
  Receive Date: 20060213
  Receipt Date: 20060131
  Transmission Date: 20060701
  Serious: Yes (Other)
  Sender: FDA-Public Use
  Company Number: 220501

PATIENT
  Age: 45 Year
  Sex: Male

DRUGS (7)
  1. AVASTIN [Suspect]
     Indication: COLORECTAL CANCER METASTATIC
     Dosage: 577 MG, Q3W, INTRAVENOUS
     Route: 042
     Dates: start: 20041203, end: 20051024
  2. LOPERAMIDE HYDROCHLORIDE [Concomitant]
  3. ACETAMINOPHEN [Concomitant]
  4. ANUSOL-HC                (CANADA) (HYDROCORTISONE ACETATE, ZINC SULFAT [Concomitant]
  5. AMITRIPTYLINE HCL [Concomitant]
  6. NAPROXEN [Concomitant]
  7. CO-CODAMOL           (ACETAMINOPHEN, CODEINE PHOSPHATE) [Concomitant]

REACTIONS (6)
  - ALANINE AMINOTRANSFERASE INCREASED [None]
  - BLOOD ALKALINE PHOSPHATASE INCREASED [None]
  - COLORECTAL CANCER METASTATIC [None]
  - MALIGNANT NEOPLASM PROGRESSION [None]
  - RECTAL HAEMORRHAGE [None]
  - VIRAL INFECTION [None]
